FAERS Safety Report 4452649-8 (Version None)
Quarter: 2004Q3

REPORT INFORMATION
  Report Type: 
  Country: None (occurrence: None)
  Receive Date: 20040916
  Receipt Date: 20040903
  Transmission Date: 20050211
  Serious: Yes (Death, Life-Threatening, Hospitalization)
  Sender: FDA-Public Use
  Company Number: 04P-056-0270760-00

PATIENT
  Age: 62 Year
  Sex: Male

DRUGS (9)
  1. TRICOR [Suspect]
     Dosage: 200 MG, 1 IN 1 D, ORAL
     Route: 048
     Dates: end: 20030812
  2. DIGOXIN [Concomitant]
  3. FLUINDIONE [Concomitant]
  4. FLECAINIDE ACETATE [Concomitant]
  5. ZESTORETIC ^HAESSLE^ (HYDROCHLOROTHIAZIDE) [Concomitant]
  6. LACIDIPINE [Concomitant]
  7. GLIBENCLAMIDE [Concomitant]
  8. METFORMIN EMBONATE [Concomitant]
  9. TOCOPHERYL ACETATE [Concomitant]

REACTIONS (25)
  - ATRIAL FIBRILLATION [None]
  - BLOOD PRESSURE DECREASED [None]
  - BLOOD PRESSURE DIASTOLIC DECREASED [None]
  - CARDIO-RESPIRATORY ARREST [None]
  - CEREBRAL DISORDER [None]
  - CONFUSIONAL STATE [None]
  - CYTOLYTIC HEPATITIS [None]
  - DEHYDRATION [None]
  - GENERAL PHYSICAL HEALTH DETERIORATION [None]
  - HEART RATE INCREASED [None]
  - HEPATIC FAILURE [None]
  - HYPERTHERMIA MALIGNANT [None]
  - LEUKOCYTOSIS [None]
  - LIVEDO RETICULARIS [None]
  - MIOSIS [None]
  - MULTI-ORGAN FAILURE [None]
  - MYDRIASIS [None]
  - PSYCHOMOTOR RETARDATION [None]
  - PUPILS UNEQUAL [None]
  - RENAL FAILURE [None]
  - RESPIRATORY DISTRESS [None]
  - RHABDOMYOLYSIS [None]
  - SOMNOLENCE [None]
  - VENTRICULAR HYPOKINESIA [None]
  - VENTRICULAR TACHYCARDIA [None]
